FAERS Safety Report 10208193 (Version 2)
Quarter: 2014Q2

REPORT INFORMATION
  Report Type: Report from Study
  Country: DE (occurrence: CO)
  Receive Date: 20140530
  Receipt Date: 20140620
  Transmission Date: 20141212
  Serious: Yes (Life-Threatening, Hospitalization)
  Sender: FDA-Public Use
  Company Number: DE-ACTELION-A-NJ2014-099677

PATIENT
  Age: 53 Year
  Sex: Female

DRUGS (4)
  1. VENTAVIS [Suspect]
     Indication: PULMONARY HYPERTENSION
     Dosage: UNK, 6 TIMES PER DAY
     Route: 055
     Dates: start: 20100929
  2. SILDENAFIL [Concomitant]
  3. METOPROLOL [Concomitant]
  4. AMLODIPINE [Concomitant]

REACTIONS (2)
  - Myocardial ischaemia [Unknown]
  - Aortic aneurysm [Unknown]
